FAERS Safety Report 18575472 (Version 15)
Quarter: 2023Q2

REPORT INFORMATION
  Report Type: Spontaneous
  Country: BR (occurrence: BR)
  Receive Date: 20201203
  Receipt Date: 20230526
  Transmission Date: 20230721
  Serious: Yes (Other)
  Sender: FDA-Public Use
  Company Number: BR-GLAXOSMITHKLINE-BR2020AMR236297

PATIENT

DRUGS (17)
  1. NUCALA [Suspect]
     Active Substance: MEPOLIZUMAB
     Indication: Asthma
     Dosage: 100 MG, Z,  (EVERY 4 WEEKS)
     Route: 042
     Dates: start: 20201215
  2. NUCALA [Suspect]
     Active Substance: MEPOLIZUMAB
     Indication: Asthma
     Dosage: 100 MG
     Dates: start: 20201215
  3. NUCALA [Suspect]
     Active Substance: MEPOLIZUMAB
     Indication: Asthma
     Dosage: 100 MG, Q4W
     Dates: start: 202209
  4. SERETIDE [Suspect]
     Active Substance: FLUTICASONE PROPIONATE\SALMETEROL XINAFOATE
     Indication: Asthma
     Dosage: UNK, TID, 25/125 UG
     Dates: end: 20201104
  5. ALBUTEROL [Suspect]
     Active Substance: ALBUTEROL
     Indication: Crying
     Dosage: 4 PUFF(S), QID (4 JETS 6/6H)
  6. ALBUTEROL [Suspect]
     Active Substance: ALBUTEROL
     Indication: Asthmatic crisis
  7. ALBUTEROL [Suspect]
     Active Substance: ALBUTEROL
     Indication: Asthma
  8. SINGULAIR [Suspect]
     Active Substance: MONTELUKAST SODIUM
     Indication: Product used for unknown indication
     Dosage: 5 MG, QD (AT NIGHT)
  9. CEFTRIAXONE SODIUM [Suspect]
     Active Substance: CEFTRIAXONE SODIUM
     Indication: Product used for unknown indication
     Dosage: UNK
     Route: 030
  10. PRELONE [Suspect]
     Active Substance: PREDNISOLONE
     Indication: COVID-19
     Dosage: 1 DF, QD
  11. SYMBICORT [Suspect]
     Active Substance: BUDESONIDE\FORMOTEROL FUMARATE DIHYDRATE
     Indication: Asthma
     Dosage: UNK UNK, TID
     Dates: start: 20201105
  12. SYMBICORT [Suspect]
     Active Substance: BUDESONIDE\FORMOTEROL FUMARATE DIHYDRATE
     Indication: Asthmatic crisis
     Dosage: 200 UG, TID
     Dates: start: 202111
  13. AZITHROMYCIN [Suspect]
     Active Substance: AZITHROMYCIN
     Indication: Product used for unknown indication
     Dosage: 250 MG, 3 X WEEK
     Dates: start: 201908
  14. AZITHROMYCIN [Suspect]
     Active Substance: AZITHROMYCIN
     Indication: Hypersensitivity
     Dosage: 2 DF, QD
  15. SPIRIVA [Suspect]
     Active Substance: TIOTROPIUM BROMIDE MONOHYDRATE
     Indication: Product used for unknown indication
     Dosage: UNK
     Dates: start: 2018, end: 201910
  16. BUDESONIDE [Concomitant]
     Active Substance: BUDESONIDE
     Indication: Product used for unknown indication
     Dosage: 32 UG, QD
  17. MONTELUKAST [Concomitant]
     Active Substance: MONTELUKAST SODIUM
     Indication: Product used for unknown indication
     Dosage: 5 MG, QD

REACTIONS (30)
  - Apnoea [Unknown]
  - Asthmatic crisis [Unknown]
  - Crying [Recovering/Resolving]
  - Sleep disorder [Unknown]
  - Nasal septal operation [Unknown]
  - Polypectomy [Unknown]
  - Tonsillectomy [Unknown]
  - Dyspnoea [Unknown]
  - Oxygen saturation decreased [Recovered/Resolved]
  - Cough [Recovered/Resolved]
  - Wheezing [Unknown]
  - Poor quality sleep [Unknown]
  - Sneezing [Unknown]
  - Productive cough [Recovered/Resolved]
  - Coronavirus infection [Recovered/Resolved]
  - Somnolence [Recovered/Resolved]
  - Discharge [Unknown]
  - Hypersensitivity [Recovered/Resolved]
  - Quarantine [Unknown]
  - Physical deconditioning [Unknown]
  - Weight increased [Not Recovered/Not Resolved]
  - Lethargy [Not Recovered/Not Resolved]
  - Fatigue [Recovered/Resolved]
  - Anxiety [Unknown]
  - Binge eating [Not Recovered/Not Resolved]
  - Incorrect dose administered [Unknown]
  - Product use issue [Unknown]
  - Intentional product misuse [Unknown]
  - Product dose omission issue [Unknown]
  - Inappropriate schedule of product administration [Unknown]

NARRATIVE: CASE EVENT DATE: 20210530
